FAERS Safety Report 6972869-8 (Version None)
Quarter: 2010Q3

REPORT INFORMATION
  Report Type: 
  Country: None (occurrence: None)
  Receive Date: 20100909
  Receipt Date: 20100513
  Transmission Date: 20110219
  Serious: Yes (Other)
  Sender: FDA-Public Use
  Company Number: US-KINGPHARMUSA00001-K201000591

PATIENT
  Age: 88 Year
  Sex: Female

DRUGS (1)
  1. EMBEDA [Suspect]
     Dosage: UNK

REACTIONS (2)
  - OVERDOSE [None]
  - RESPIRATORY DEPRESSION [None]
